FAERS Safety Report 16299091 (Version 2)
Quarter: 2019Q2

REPORT INFORMATION
  Report Type: Report from Study
  Country: None (occurrence: US)
  Receive Date: 20190510
  Receipt Date: 20190622
  Transmission Date: 20190711
  Serious: Yes (Other)
  Sender: FDA-Public Use
  Company Number: US-ABBVIE-19S-163-2772485-00

PATIENT
  Age: 62 Year
  Sex: Male
  Weight: 87.62 kg

DRUGS (2)
  1. CREON [Suspect]
     Active Substance: PANCRELIPASE AMYLASE\PANCRELIPASE LIPASE\PANCRELIPASE PROTEASE
     Dosage: 3 CAP WITH MEALS, 1 WITH SNACKS
     Route: 048
     Dates: start: 20190514
  2. CREON [Suspect]
     Active Substance: PANCRELIPASE AMYLASE\PANCRELIPASE LIPASE\PANCRELIPASE PROTEASE
     Indication: PANCREATITIS CHRONIC
     Dosage: 2 CAP WITH MEALS, 1 WITH SNACKS
     Route: 048
     Dates: start: 20160417, end: 20190513

REACTIONS (9)
  - Knee operation [Unknown]
  - Pancreatitis chronic [Not Recovered/Not Resolved]
  - Chest pain [Unknown]
  - Gastritis [Unknown]
  - Cholecystectomy [Unknown]
  - Faecal calprotectin increased [Unknown]
  - Neck surgery [Unknown]
  - Diarrhoea [Not Recovered/Not Resolved]
  - Faecal elastase concentration decreased [Unknown]

NARRATIVE: CASE EVENT DATE: 2016
